FAERS Safety Report 9185742 (Version 1)
Quarter: 2013Q1

REPORT INFORMATION
  Report Type: Spontaneous
  Country: GB (occurrence: None)
  Receive Date: 20130321
  Receipt Date: 20130321
  Transmission Date: 20140127
  Serious: Yes (Disabling)
  Sender: FDA-Public Use
  Company Number: 2013SUN00371

PATIENT
  Age: 83 Year
  Sex: Male
  Weight: 85 kg

DRUGS (6)
  1. BICALUTAMIDE [Suspect]
     Indication: PROSTATE CANCER
     Route: 048
  2. ZOLADEX [Suspect]
     Indication: PROSTATE CANCER
     Route: 058
     Dates: start: 20121123, end: 20121224
  3. PRAVASTATIN (PRAVASTATIN) [Concomitant]
  4. TAMOXIFEN [Concomitant]
  5. VERPAMIL (VERPAMIL) [Concomitant]
  6. WARFARIN (WARFARIN) [Concomitant]

REACTIONS (2)
  - Loss of consciousness [None]
  - Orthostatic hypotension [None]
